FAERS Safety Report 5652273-5 (Version None)
Quarter: 2008Q1

REPORT INFORMATION
  Report Type: 
  Country: None (occurrence: None)
  Receive Date: 20080305
  Receipt Date: 20080227
  Transmission Date: 20080703
  Serious: Yes (Hospitalization)
  Sender: FDA-Public Use
  Company Number: US-BOEHRINGER INGELHEIM GMBH, GERMANY-2007-BP-07038BP

PATIENT
  Sex: Male

DRUGS (9)
  1. SPIRIVA [Suspect]
     Indication: CHRONIC OBSTRUCTIVE PULMONARY DISEASE
     Route: 055
     Dates: start: 20060101
  2. SPIRIVA [Suspect]
     Indication: EMPHYSEMA
  3. ALBUTEROL [Concomitant]
     Indication: CHRONIC OBSTRUCTIVE PULMONARY DISEASE
  4. NORVASC [Concomitant]
  5. ACCUPRIL [Concomitant]
  6. PLETAL [Concomitant]
  7. ATENOLOL [Concomitant]
  8. ECOTRIN [Concomitant]
  9. ZOCOR [Concomitant]

REACTIONS (2)
  - BRONCHOPNEUMONIA [None]
  - UPPER RESPIRATORY TRACT INFECTION [None]
